FAERS Safety Report 9830704 (Version 2)
Quarter: 2014Q1

REPORT INFORMATION
  Report Type: Spontaneous
  Country: CA (occurrence: CA)
  Receive Date: 20140120
  Receipt Date: 20140120
  Transmission Date: 20141002
  Serious: Yes (Other)
  Sender: FDA-Public Use
  Company Number: CA-BAXTER-2013BAX030721

PATIENT
  Sex: 0

DRUGS (2)
  1. FORANE (ISOFLURANE) [Suspect]
     Indication: STATUS EPILEPTICUS
  2. FORANE (ISOFLURANE) [Suspect]
     Indication: OFF LABEL USE

REACTIONS (1)
  - Nervous system disorder [Unknown]
